FAERS Safety Report 9319470 (Version 1)
Quarter: 2013Q2

REPORT INFORMATION
  Report Type: Spontaneous
  Country: US (occurrence: US)
  Receive Date: 20130530
  Receipt Date: 20130530
  Transmission Date: 20140414
  Serious: No
  Sender: FDA-Public Use
  Company Number: US-GLAXOSMITHKLINE-A0988164A

PATIENT
  Age: 53 Year
  Sex: Female
  Weight: 85.6 kg

DRUGS (1)
  1. FLOLAN [Suspect]
     Indication: PRODUCT USED FOR UNKNOWN INDICATION
     Dosage: 33NGKM CONTINUOUS
     Route: 065
     Dates: start: 20000208, end: 20120816

REACTIONS (6)
  - Pain in jaw [Recovered/Resolved]
  - Flushing [Unknown]
  - Headache [Unknown]
  - Pain in extremity [Unknown]
  - Diarrhoea [Unknown]
  - Musculoskeletal pain [Unknown]
